FAERS Safety Report 16647551 (Version 6)
Quarter: 2020Q1

REPORT INFORMATION
  Report Type: Spontaneous
  Country: US (occurrence: US)
  Receive Date: 20190730
  Receipt Date: 20200103
  Transmission Date: 20200409
  Serious: No
  Sender: FDA-Public Use
  Company Number: US-PFIZER INC-2019322811

PATIENT
  Age: 82 Year
  Sex: Female

DRUGS (15)
  1. VITAMIN D3 [Concomitant]
     Active Substance: CHOLECALCIFEROL
     Dosage: 5000 IU, DAILY
     Route: 048
  2. FASLODEX [Concomitant]
     Active Substance: FULVESTRANT
     Indication: BREAST CANCER
     Dosage: 500 MG, CYCLIC (EVERY 28 DAYS)
     Dates: start: 20180920
  3. AGGRENOX [Concomitant]
     Active Substance: ASPIRIN\DIPYRIDAMOLE
     Dosage: UNK UNK, 2X/DAY(ER CAP 200 MG-25 MG)
     Route: 048
  4. FENOFIBRATE. [Concomitant]
     Active Substance: FENOFIBRATE
     Dosage: 160 MG, 1X/DAY
     Route: 048
  5. NORCO [Concomitant]
     Active Substance: ACETAMINOPHEN\HYDROCODONE BITARTRATE
     Dosage: UNK (HYDROCODONE-ACETAMINOPHEN ORAL 5 MG-325 MG)
     Route: 048
  6. IBRANCE [Suspect]
     Active Substance: PALBOCICLIB
     Indication: BREAST CANCER FEMALE
     Dosage: 100 MG, CYCLIC (1 A DAY FOR 21 DAYS, THEN STOP FOR 7 DAYS) (IN DAYS 1-21 EVERY 28 D)
     Route: 048
     Dates: start: 20180921
  7. BIOTIN [Concomitant]
     Active Substance: BIOTIN
     Dosage: UNK
     Route: 048
  8. DICYCLOMINE [Concomitant]
     Active Substance: DICYCLOMINE HYDROCHLORIDE
     Dosage: 10 MG, 3X/DAY
     Route: 048
  9. GABAPENTIN. [Concomitant]
     Active Substance: GABAPENTIN
     Dosage: 900 MG, 3X/DAY
     Route: 048
  10. OCUVITE [Concomitant]
     Active Substance: VITAMINS
     Dosage: UNK(1,000 UNIT-200 MG-60 UNIT-2MG)
     Route: 048
  11. SPIRIVA [Concomitant]
     Active Substance: TIOTROPIUM BROMIDE MONOHYDRATE
     Dosage: UNK (18 MCG CAPSULE, W/INHALATION DEVICE)
  12. TRIMETHOPRIM. [Concomitant]
     Active Substance: TRIMETHOPRIM
     Dosage: 1 DF, ALTERNATE DAY
     Route: 048
  13. ZIAC [BISOPROLOL FUMARATE;HYDROCHLOROTHIAZIDE] [Concomitant]
     Dosage: UNK(BISOPROLOL-HYDROCHIOROTHIAZIDE ORAL 5 MG-6.25 MG)
     Route: 048
  14. ZOLPIDEM [Concomitant]
     Active Substance: ZOLPIDEM TARTRATE
     Dosage: UNK
     Route: 048
  15. DOXAZOSIN [Concomitant]
     Active Substance: DOXAZOSIN MESYLATE
     Dosage: UNK, 1X/DAY (TAKE 1 TABLET BY ORAL ROUTE ONCE A DAY (AT BEDTIME) FOR 90 DAYS)
     Route: 048

REACTIONS (3)
  - Product dose omission [Unknown]
  - Memory impairment [Recovering/Resolving]
  - Distractibility [Recovering/Resolving]

NARRATIVE: CASE EVENT DATE: 201906
